FAERS Safety Report 8658185 (Version 3)
Quarter: 2012Q4

REPORT INFORMATION
  Report Type: Report from Study
  Country: PR (occurrence: PR)
  Receive Date: 20120710
  Receipt Date: 20120908
  Transmission Date: 20130627
  Serious: Yes (Hospitalization)
  Sender: FDA-Public Use
  Company Number: PR-ABBOTT-12P-131-0953313-00

PATIENT
  Age: 71 Year
  Sex: Male

DRUGS (6)
  1. HUMIRA 40 MG/0.8 ML PEN [Suspect]
     Indication: PSORIATIC ARTHROPATHY
     Route: 058
     Dates: start: 20120608, end: 201208
  2. BETAMETHASONE [Concomitant]
     Indication: PSORIATIC ARTHROPATHY
     Route: 061
  3. UNKNOWN MEDICATION TO TREAT INFLAMMATION [Concomitant]
     Indication: PSORIATIC ARTHROPATHY
     Route: 048
  4. ULTRACET [Concomitant]
     Indication: PSORIATIC ARTHROPATHY
     Route: 048
  5. PROTONIX [Concomitant]
     Indication: OESOPHAGEAL ULCER
     Route: 048
  6. PROTONIX [Concomitant]
     Indication: DUODENAL ULCER

REACTIONS (1)
  - Urinary tract obstruction [Recovering/Resolving]
